FAERS Safety Report 7429686-4 (Version None)
Quarter: 2011Q2

REPORT INFORMATION
  Report Type: 
  Country: None (occurrence: None)
  Receive Date: 20110421
  Receipt Date: 20110418
  Transmission Date: 20111010
  Serious: Yes (Death, Other)
  Sender: FDA-Public Use
  Company Number: US-ASTRAZENECA-2007UW05123

PATIENT
  Age: 18058 Day
  Sex: Male
  Weight: 81.6 kg

DRUGS (3)
  1. SEROQUEL [Suspect]
     Indication: INSOMNIA
     Dosage: 100-300 MG
     Route: 048
     Dates: start: 20020516, end: 20061213
  2. ZOLOFT [Concomitant]
     Dates: start: 20030519, end: 20040222
  3. PAXIL [Concomitant]
     Dates: start: 20030103, end: 20031025

REACTIONS (2)
  - DEATH [None]
  - PANCREATITIS [None]
